FAERS Safety Report 6236024-1 (Version None)
Quarter: 2009Q2

REPORT INFORMATION
  Report Type: 
  Country: None (occurrence: None)
  Receive Date: 20090617
  Receipt Date: 20090617
  Transmission Date: 20091009
  Serious: Yes (Other)
  Sender: FDA-Public Use
  Company Number: None

PATIENT
  Age: 74 Year
  Sex: Male
  Weight: 81.6475 kg

DRUGS (1)
  1. ZICAM COLD REMEDY NASAL GEL MATRIXX INITIATIVES, INC. [Suspect]
     Indication: NASAL CONGESTION
     Dosage: ONE SPRAY EVERY 4 HOURS NASAL, ABOUT 3 TIMES IN 10 MO.
     Route: 045

REACTIONS (1)
  - ANOSMIA [None]
